FAERS Safety Report 5896015-7 (Version None)
Quarter: 2008Q3

REPORT INFORMATION
  Report Type: 
  Country: None (occurrence: None)
  Receive Date: 20080924
  Receipt Date: 20080916
  Transmission Date: 20090109
  Serious: Yes (Hospitalization, Other)
  Sender: FDA-Public Use
  Company Number: US-AMGEN-QUU280747

PATIENT
  Sex: Female

DRUGS (8)
  1. ENBREL [Suspect]
     Indication: DRUG USE FOR UNKNOWN INDICATION
     Route: 058
     Dates: start: 20041101
  2. SYNTHROID [Concomitant]
     Route: 048
  3. PREVACID [Concomitant]
     Route: 048
  4. PREDNISONE [Concomitant]
     Route: 048
  5. METFORMIN HCL [Concomitant]
     Route: 048
  6. HEPARIN [Concomitant]
     Route: 058
  7. PROGESTERONE [Concomitant]
     Route: 030
  8. ESTROGENIC SUBSTANCE [Concomitant]

REACTIONS (9)
  - BLOOD PRESSURE INCREASED [None]
  - POST PROCEDURAL INFECTION [None]
  - POSTPARTUM DEPRESSION [None]
  - PREMATURE LABOUR [None]
  - PREMATURE RUPTURE OF MEMBRANES [None]
  - PROTEIN URINE PRESENT [None]
  - RASH PRURITIC [None]
  - RHEUMATOID ARTHRITIS [None]
  - TOOTH EXTRACTION [None]
